FAERS Safety Report 5283410-2 (Version None)
Quarter: 2007Q1

REPORT INFORMATION
  Report Type: 
  Country: None (occurrence: None)
  Receive Date: 20061226
  Receipt Date: 20061121
  Transmission Date: 20070707
  Serious: No
  Sender: FDA-Public Use
  Company Number: 2006PV025677

PATIENT
  Age: 54 Year
  Sex: Female

DRUGS (5)
  1. SYMLIN [Suspect]
     Indication: DIABETES MELLITUS INSULIN-DEPENDENT
     Dosage: 15 MCG;TID;SC
     Route: 058
     Dates: start: 20061115
  2. SYNTHROID [Concomitant]
  3. INSULIN [Concomitant]
  4. VITAMINS [Concomitant]
  5. ANTIHYPERTENSIVES [Concomitant]

REACTIONS (5)
  - COUGH [None]
  - DRY THROAT [None]
  - HEADACHE [None]
  - LIP DRY [None]
  - NASAL DRYNESS [None]
